FAERS Safety Report 19441053 (Version 1)
Quarter: 2021Q2

REPORT INFORMATION
  Report Type: Report from Study
  Country: None (occurrence: AT)
  Receive Date: 20210621
  Receipt Date: 20210621
  Transmission Date: 20210717
  Serious: Yes (Hospitalization)
  Sender: FDA-Public Use
  Company Number: AT-ABBVIE-21K-009-3942644-00

PATIENT
  Sex: Female

DRUGS (2)
  1. CORTISOL [Concomitant]
     Active Substance: HYDROCORTISONE
     Indication: PRODUCT USED FOR UNKNOWN INDICATION
  2. HUMIRA [Suspect]
     Active Substance: ADALIMUMAB
     Indication: CROHN^S DISEASE
     Route: 058
     Dates: start: 2017, end: 202008

REACTIONS (4)
  - Gastrointestinal tube insertion [Unknown]
  - Herpes zoster [Unknown]
  - Abdominal adhesions [Unknown]
  - Procedural vomiting [Unknown]

NARRATIVE: CASE EVENT DATE: 202008
